FAERS Safety Report 7422007-2 (Version None)
Quarter: 2011Q2

REPORT INFORMATION
  Report Type: 
  Country: None (occurrence: None)
  Receive Date: 20110418
  Receipt Date: 20110414
  Transmission Date: 20111010
  Serious: Yes (Other)
  Sender: FDA-Public Use
  Company Number: US-PFIZER INC-2011082949

PATIENT
  Sex: Female
  Weight: 65.306 kg

DRUGS (6)
  1. ZOLOFT [Suspect]
     Indication: ANXIETY
  2. ATENOLOL [Concomitant]
     Indication: HYPERTENSION
     Dosage: UNK
  3. KLONOPIN [Concomitant]
     Dosage: UNK
  4. KLOR-CON [Concomitant]
     Dosage: UNK
  5. ZOLOFT [Suspect]
     Indication: DEPRESSION
     Dosage: 25 MG, 1X/DAY
     Route: 048
     Dates: start: 20100401, end: 20110329
  6. MULTI-VITAMINS [Concomitant]
     Dosage: UNK

REACTIONS (7)
  - DIVERTICULITIS [None]
  - CARPAL TUNNEL SYNDROME [None]
  - BLOOD URINE PRESENT [None]
  - HORDEOLUM [None]
  - DEPRESSION [None]
  - TOOTHACHE [None]
  - EPIPLOIC APPENDAGITIS [None]
